FAERS Safety Report 18457475 (Version 3)
Quarter: 2021Q2

REPORT INFORMATION
  Report Type: Spontaneous
  Country: US (occurrence: US)
  Receive Date: 20201103
  Receipt Date: 20210603
  Transmission Date: 20210717
  Serious: No
  Sender: FDA-Public Use
  Company Number: US-SA-2020SA306411

PATIENT
  Age: 67 Year
  Sex: Male

DRUGS (2)
  1. DUPIXENT [Suspect]
     Active Substance: DUPILUMAB
     Indication: PSORIASIS
     Dosage: 300 MG, QOW
     Route: 058
     Dates: start: 20200827, end: 2020
  2. DUPIXENT [Suspect]
     Active Substance: DUPILUMAB
     Indication: DERMATITIS ATOPIC
     Dosage: UNK, QOW
     Route: 058
     Dates: start: 20200720, end: 2020

REACTIONS (4)
  - Peripheral swelling [Recovered/Resolved]
  - Product use in unapproved indication [Unknown]
  - Infection [Unknown]
  - Infection [Unknown]

NARRATIVE: CASE EVENT DATE: 20200720
